FAERS Safety Report 17274535 (Version 3)
Quarter: 2020Q1

REPORT INFORMATION
  Report Type: Report from Study
  Country: FR (occurrence: FR)
  Receive Date: 20200115
  Receipt Date: 20200219
  Transmission Date: 20200409
  Serious: Yes (Disabling, Other)
  Sender: FDA-Public Use
  Company Number: FR-GILEAD-2020-0446644

PATIENT
  Age: 49 Year
  Sex: Female
  Weight: 72 kg

DRUGS (16)
  1. EMTRICITABINE/RILPIVIRINE/TENOFOVIR ALAFENAMIDE [Suspect]
     Active Substance: EMTRICITABINE\RILPIVIRINE HYDROCHLORIDE\TENOFOVIR ALAFENAMIDE FUMARATE
     Indication: HIV INFECTION
     Dosage: 25 MG, QD
     Route: 048
     Dates: start: 20180209, end: 20190717
  2. KEPPRA [Concomitant]
     Active Substance: LEVETIRACETAM
     Indication: EPILEPSY
  3. LAMALINE (ACETAMINOPHEN\CAFFEINE\OPIUM) [Concomitant]
     Active Substance: ACETAMINOPHEN\CAFFEINE\OPIUM
  4. BROMAZEPAM [Concomitant]
     Active Substance: BROMAZEPAM
  5. COVERSYL [PERINDOPRIL ARGININE] [Concomitant]
     Active Substance: PERINDOPRIL ARGININE
  6. VESICARE [Concomitant]
     Active Substance: SOLIFENACIN SUCCINATE
  7. PHOSPHONEUROS [Concomitant]
     Active Substance: CALCIUM PHOSPHATE, DIBASIC, ANHYDROUS\MAGNESIUM GLYCEROPHOSPHATE\PHOSPHORIC ACID\SODIUM PHOSPHATE, DIBASIC
  8. DEROXAT [Concomitant]
     Active Substance: PAROXETINE HYDROCHLORIDE
  9. MAG 2 [MAGNESIUM CARBONATE] [Concomitant]
     Active Substance: MAGNESIUM CARBONATE
  10. LEVOCARNIL [LEVOCARNITINE] [Concomitant]
     Active Substance: LEVOCARNITINE
  11. TIBIAL [Concomitant]
     Indication: URINARY INCONTINENCE
  12. LORMETAZEPAM [Concomitant]
     Active Substance: LORMETAZEPAM
  13. IRON [Concomitant]
     Active Substance: IRON
     Indication: IRON DEFICIENCY ANAEMIA
  14. JULUCA [Concomitant]
     Active Substance: DOLUTEGRAVIR SODIUM\RILPIVIRINE HYDROCHLORIDE
  15. CARDENSIEL [Concomitant]
     Active Substance: BISOPROLOL FUMARATE
  16. TIMOFEROL [Concomitant]
     Active Substance: ASCORBIC ACID\FERROUS SULFATE

REACTIONS (1)
  - Mitochondrial cytopathy [Not Recovered/Not Resolved]

NARRATIVE: CASE EVENT DATE: 20190715
